FAERS Safety Report 13355676 (Version 1)
Quarter: 2017Q1

REPORT INFORMATION
  Report Type: Spontaneous
  Country: US (occurrence: US)
  Receive Date: 20170321
  Receipt Date: 20170321
  Transmission Date: 20170429
  Serious: No
  Sender: FDA-Public Use
  Company Number: US-BAUSCH-BL-2016-030403

PATIENT
  Age: 14 Year
  Sex: Female

DRUGS (2)
  1. TRETINOIN GEL 0.025% [Suspect]
     Active Substance: TRETINOIN
     Indication: ACNE
     Dosage: EVERY OTHER NIGHT FOR 2 WEEKS THEN AT BED TIME.
     Route: 065
     Dates: start: 20161105
  2. TRETINOIN GEL 0.025% [Suspect]
     Active Substance: TRETINOIN
     Indication: SKIN DISORDER
     Dosage: EVERY OTHER NIGHT FOR 2 WEEKS THEN AT BED TIME
     Route: 061
     Dates: start: 20161107

REACTIONS (4)
  - Papule [Unknown]
  - Scab [Unknown]
  - Pruritus [Unknown]
  - Erythema [Unknown]

NARRATIVE: CASE EVENT DATE: 201611
